FAERS Safety Report 16140513 (Version 1)
Quarter: 2019Q2

REPORT INFORMATION
  Report Type: Spontaneous
  Country: US (occurrence: US)
  Receive Date: 20190401
  Receipt Date: 20190401
  Transmission Date: 20190711
  Serious: No
  Sender: FDA-Public Use
  Company Number: US-SEPTODONT-201905012

PATIENT

DRUGS (1)
  1. COOKE-WAITE LIDOCAINE 100 (EPINEPHRINE BITARTRATE\LIDOCAINE HYDROCHLORIDE) [Suspect]
     Active Substance: EPINEPHRINE BITARTRATE\LIDOCAINE HYDROCHLORIDE
     Indication: DENTAL LOCAL ANAESTHESIA
     Dosage: IT WOULD TAKE 3-4 APPLICATIONS BEFORE A PATIENT^S MOUTH WAS NUMB ENOUGH TO START CUTTING
     Route: 004
     Dates: start: 20190111, end: 20190111

REACTIONS (1)
  - Drug ineffective [Recovered/Resolved]

NARRATIVE: CASE EVENT DATE: 20190111
